FAERS Safety Report 8565101-5 (Version None)
Quarter: 2012Q3

REPORT INFORMATION
  Report Type: 
  Country: None (occurrence: None)
  Receive Date: 20120803
  Receipt Date: 20120731
  Transmission Date: 20120928
  Serious: Yes (Hospitalization, Other)
  Sender: FDA-Public Use
  Company Number: US-PFIZER INC-2012081486

PATIENT
  Sex: Female
  Weight: 104 kg

DRUGS (1)
  1. PROCARDIA [Suspect]
     Dosage: UNK
     Route: 048
     Dates: start: 20110428

REACTIONS (1)
  - MYOCARDIAL INFARCTION [None]
